FAERS Safety Report 5855797-0 (Version None)
Quarter: 2008Q3

REPORT INFORMATION
  Report Type: 
  Country: None (occurrence: None)
  Receive Date: 20080825
  Receipt Date: 20070918
  Transmission Date: 20090109
  Serious: No
  Sender: FDA-Public Use
  Company Number: US-KINGPHARMUSA00001-K200701216

PATIENT

DRUGS (2)
  1. SEPTRA [Suspect]
     Indication: WOUND INFECTION STAPHYLOCOCCAL
     Dosage: 1 TABLET, BID
     Route: 048
     Dates: start: 20070901, end: 20070901
  2. REBIF [Suspect]
     Indication: MULTIPLE SCLEROSIS
     Dosage: UNK, UNK

REACTIONS (1)
  - RASH [None]
